FAERS Safety Report 5500886-3 (Version None)
Quarter: 2007Q4

REPORT INFORMATION
  Report Type: 
  Country: None (occurrence: None)
  Receive Date: 20071029
  Receipt Date: 20071022
  Transmission Date: 20080405
  Serious: Yes (Hospitalization, Other)
  Sender: FDA-Public Use
  Company Number: US-GENENTECH-238160

PATIENT
  Sex: Female

DRUGS (1)
  1. LUCENTIS [Suspect]
     Dosage: UNK, UNK
     Route: 031

REACTIONS (1)
  - CEREBROVASCULAR ACCIDENT [None]
